FAERS Safety Report 12519741 (Version 1)
Quarter: 2016Q2

REPORT INFORMATION
  Report Type: Spontaneous
  Country: FR (occurrence: DZ)
  Receive Date: 20160630
  Receipt Date: 20160630
  Transmission Date: 20160815
  Serious: Yes (Hospitalization, Other)
  Sender: FDA-Public Use
  Company Number: FR-009507513-1606DZA012409

PATIENT
  Age: 57 Year
  Sex: Female
  Weight: 71 kg

DRUGS (5)
  1. COPEGUS [Suspect]
     Active Substance: RIBAVIRIN
     Dosage: 1000 MG, QD
     Dates: start: 20120228, end: 20130303
  2. PEGASYS [Suspect]
     Active Substance: PEGINTERFERON ALFA-2A
     Dosage: TOTAL DAILY DOSE: 180 MICROGRAM, FREQUENCY: QW
     Dates: start: 20100228, end: 20130303
  3. BOCEPREVIR [Suspect]
     Active Substance: BOCEPREVIR
     Indication: CHRONIC HEPATITIS C
     Dosage: TOTAL DAILY DOSE: 800 MG, FREQUENCY: TID
     Route: 048
     Dates: start: 20120225, end: 20130303
  4. PEGASYS [Suspect]
     Active Substance: PEGINTERFERON ALFA-2A
     Indication: CHRONIC HEPATITIS C
     Dosage: TOTAL DAILY DOSE: 180 MICROGRAM, FREQUENCY: QW
     Dates: start: 20100222, end: 20110222
  5. COPEGUS [Suspect]
     Active Substance: RIBAVIRIN
     Indication: CHRONIC HEPATITIS C
     Dosage: 1000 MG, QD
     Dates: start: 20100222, end: 20110222

REACTIONS (5)
  - Colon cancer [Unknown]
  - Abdominal distension [Unknown]
  - Obstruction [Unknown]
  - Weight decreased [Unknown]
  - Intestinal transit time abnormal [Unknown]

NARRATIVE: CASE EVENT DATE: 2014
